FAERS Safety Report 18598171 (Version 3)
Quarter: 2020Q4

REPORT INFORMATION
  Report Type: Spontaneous
  Country: CA (occurrence: CA)
  Receive Date: 20201210
  Receipt Date: 20201217
  Transmission Date: 20210114
  Serious: Yes (Other)
  Sender: FDA-Public Use
  Company Number: CA-CELLTRION INC.-2019CA026655

PATIENT

DRUGS (12)
  1. INFLECTRA [Suspect]
     Active Substance: INFLIXIMAB-DYYB
     Dosage: 10 MG/KG, 0, 1, 3 AND 7 WEEKS, THEN EVERY 4 WEEKS
     Route: 042
     Dates: start: 20191119
  2. INFLECTRA [Suspect]
     Active Substance: INFLIXIMAB-DYYB
     Dosage: 10 MG/KG, 0, 1, 3 AND 7 WEEKS, THEN EVERY 4 WEEKS
     Route: 042
     Dates: start: 20200311
  3. INFLECTRA [Suspect]
     Active Substance: INFLIXIMAB-DYYB
     Indication: COLITIS ULCERATIVE
     Dosage: 10 MG/KG, 0, 1, 3 AND 7 WEEKS, THEN EVERY 4 WEEKS
     Route: 042
     Dates: start: 20191029, end: 20201007
  4. INFLECTRA [Suspect]
     Active Substance: INFLIXIMAB-DYYB
     Dosage: 10 MG/G, EVERY 4 WEEKS
     Route: 042
     Dates: start: 20191216
  5. INFLECTRA [Suspect]
     Active Substance: INFLIXIMAB-DYYB
     Dosage: 10 MG/KG EVERY 8 WEEKS
     Route: 042
     Dates: start: 20201209
  6. PREDNISONE. [Concomitant]
     Active Substance: PREDNISONE
     Dosage: UNK
     Route: 065
  7. INFLECTRA [Suspect]
     Active Substance: INFLIXIMAB-DYYB
     Dosage: 10 MG/KG, 0, 1, 3 AND 7 WEEKS, THEN EVERY 4 WEEKS
     Route: 042
     Dates: start: 20191119
  8. INFLECTRA [Suspect]
     Active Substance: INFLIXIMAB-DYYB
     Dosage: 10 MG/KG, 0, 1, 3 AND 7 WEEKS, THEN EVERY 4 WEEKS
     Route: 042
     Dates: start: 20200212
  9. INFLECTRA [Suspect]
     Active Substance: INFLIXIMAB-DYYB
     Dosage: 10 MG/G, EVERY 4 WEEKS
     Route: 042
     Dates: start: 20200114
  10. INFLECTRA [Suspect]
     Active Substance: INFLIXIMAB-DYYB
     Dosage: 10 MG/KG, 0, 1, 3 AND 7 WEEKS, THEN EVERY 4 WEEKS
     Route: 042
     Dates: start: 20191105
  11. INFLECTRA [Suspect]
     Active Substance: INFLIXIMAB-DYYB
     Dosage: 10 MG/KG, 0, 1, 3 AND 7 WEEKS, THEN EVERY 4 WEEKS
     Route: 042
     Dates: start: 20200421
  12. INFLECTRA [Suspect]
     Active Substance: INFLIXIMAB-DYYB
     Dosage: 10 MG/KG, 0, 1, 3 AND 7 WEEKS, THEN EVERY 4 WEEKS
     Route: 042
     Dates: start: 20201007

REACTIONS (9)
  - Alopecia [Unknown]
  - Off label use [Unknown]
  - Periorbital cellulitis [Recovering/Resolving]
  - Inappropriate schedule of product administration [Unknown]
  - Cardiovascular disorder [Unknown]
  - Product use issue [Unknown]
  - Condition aggravated [Unknown]
  - Weight increased [Unknown]
  - Intentional product use issue [Unknown]

NARRATIVE: CASE EVENT DATE: 2019
